APPROVED DRUG PRODUCT: QUESTRAN LIGHT
Active Ingredient: CHOLESTYRAMINE
Strength: EQ 4GM RESIN/SCOOPFUL **Federal Register determination that product was not discontinued or withdrawn for safety or effectiveness reasons**
Dosage Form/Route: POWDER;ORAL
Application: N019669 | Product #003
Applicant: BRISTOL MYERS CO
Approved: Dec 5, 1988 | RLD: Yes | RS: No | Type: DISCN